FAERS Safety Report 5155473-6 (Version None)
Quarter: 2006Q4

REPORT INFORMATION
  Report Type: 
  Country: None (occurrence: None)
  Receive Date: 20061114
  Receipt Date: 20061101
  Transmission Date: 20070319
  Serious: Yes (Hospitalization)
  Sender: FDA-Public Use
  Company Number: 232043

PATIENT
  Age: 52 Year
  Sex: Female

DRUGS (5)
  1. RAPTIVA [Suspect]
     Indication: PSORIASIS
     Dates: start: 20060923, end: 20061013
  2. PAIN MEDICATION (ANALGESIC NOS) [Concomitant]
  3. ANTIDIABETIC DRUG NOS (ANTIDIABETIC DRUG NOS) [Concomitant]
  4. MEDICATION (UNK INGREDIENT) (GENERIC COMPONENT(S)) [Concomitant]
  5. MUSCLE RELAXANT (UNK INGREDIENTS) (MUSCLE RELAXANT NOS) [Concomitant]

REACTIONS (14)
  - CHILLS [None]
  - DEHYDRATION [None]
  - EPISTAXIS [None]
  - FATIGUE [None]
  - GASTRIC DISORDER [None]
  - GASTROINTESTINAL DISORDER [None]
  - HEADACHE [None]
  - INFLUENZA LIKE ILLNESS [None]
  - INTESTINAL FUNCTIONAL DISORDER [None]
  - NAUSEA [None]
  - PSORIASIS [None]
  - PYREXIA [None]
  - STRESS [None]
  - WHITE BLOOD CELL COUNT INCREASED [None]
